FAERS Safety Report 19495669 (Version 1)
Quarter: 2021Q3

REPORT INFORMATION
  Report Type: Spontaneous
  Country: PA (occurrence: PA)
  Receive Date: 20210706
  Receipt Date: 20210706
  Transmission Date: 20211014
  Serious: Yes (Death, Other)
  Sender: FDA-Public Use
  Company Number: PA-ASTELLAS-2021US024288

PATIENT
  Age: 95 Year
  Sex: Male

DRUGS (2)
  1. ELIGARD [Concomitant]
     Active Substance: LEUPROLIDE ACETATE
     Indication: PRODUCT USED FOR UNKNOWN INDICATION
     Route: 065
  2. XTANDI [Suspect]
     Active Substance: ENZALUTAMIDE
     Indication: PROSTATE CANCER
     Route: 048
     Dates: start: 20190101, end: 20210626

REACTIONS (3)
  - Off label use [Unknown]
  - Underdose [Unknown]
  - Death [Fatal]

NARRATIVE: CASE EVENT DATE: 20190101
